FAERS Safety Report 4512199-7 (Version None)
Quarter: 2004Q4

REPORT INFORMATION
  Report Type: 
  Country: None (occurrence: None)
  Receive Date: 20041123
  Receipt Date: 20041111
  Transmission Date: 20050328
  Serious: Yes (Death, Hospitalization)
  Sender: FDA-Public Use
  Company Number: THQ2004A00736

PATIENT
  Age: 78 Year
  Sex: Male

DRUGS (7)
  1. PIOGLITAZONE HCL [Suspect]
     Indication: DIABETES MELLITUS
     Dosage: 30 MG (1 D)
     Dates: start: 20031126, end: 20040611
  2. LOPRESSOR [Concomitant]
  3. COUMADIN [Concomitant]
  4. LASIC (FUROSEMIDE) [Concomitant]
  5. CRESTOR [Concomitant]
  6. ALTACE [Concomitant]
  7. NORVASC [Concomitant]

REACTIONS (7)
  - ACUTE PULMONARY OEDEMA [None]
  - ATRIAL FIBRILLATION [None]
  - CARDIAC FAILURE [None]
  - DIASTOLIC DYSFUNCTION [None]
  - DYSPNOEA [None]
  - FLUID RETENTION [None]
  - RENAL ARTERY STENOSIS [None]
